FAERS Safety Report 7412518-8 (Version None)
Quarter: 2011Q2

REPORT INFORMATION
  Report Type: 
  Country: None (occurrence: None)
  Receive Date: 20110408
  Receipt Date: 20110408
  Transmission Date: 20111010
  Serious: Yes (Other)
  Sender: FDA-Public Use
  Company Number: None

PATIENT
  Age: 36 Year
  Sex: Male
  Weight: 136.9863 kg

DRUGS (1)
  1. ZYVOX [Suspect]
     Indication: CELLULITIS
     Dosage: 600MG TWICE DAILY ORAL
     Route: 048
     Dates: start: 20110311, end: 20110325

REACTIONS (2)
  - TOOTH DISCOLOURATION [None]
  - TONGUE DISCOLOURATION [None]
